FAERS Safety Report 11697388 (Version 1)
Quarter: 2015Q4

REPORT INFORMATION
  Report Type: Spontaneous
  Country: KR (occurrence: KR)
  Receive Date: 20151104
  Receipt Date: 20151104
  Transmission Date: 20160304
  Serious: Yes (Hospitalization)
  Sender: FDA-Public Use
  Company Number: KR-BAUSCH-BL-2015-025604

PATIENT
  Age: 73 Year
  Sex: Male

DRUGS (4)
  1. WARFARIN [Concomitant]
     Active Substance: WARFARIN
     Indication: ANTICOAGULANT THERAPY
  2. PENTOTHAL [Concomitant]
     Active Substance: THIOPENTAL SODIUM
     Indication: SEDATION
  3. DILTIAZEM [Suspect]
     Active Substance: DILTIAZEM
     Indication: ARRHYTHMIA PROPHYLAXIS
     Route: 065
  4. AMIODARONE [Suspect]
     Active Substance: AMIODARONE
     Indication: ARRHYTHMIA PROPHYLAXIS
     Route: 065

REACTIONS (1)
  - Sinus node dysfunction [Unknown]
